FAERS Safety Report 23557554 (Version 1)
Quarter: 2024Q1

REPORT INFORMATION
  Report Type: Spontaneous
  Country: SE (occurrence: None)
  Receive Date: 20240223
  Receipt Date: 20240223
  Transmission Date: 20240409
  Serious: Yes (Life-Threatening, Hospitalization)
  Sender: FDA-Public Use
  Company Number: 2024A042462

PATIENT
  Age: 57 Year
  Sex: Male
  Weight: 90 kg

DRUGS (10)
  1. FASENRA [Suspect]
     Active Substance: BENRALIZUMAB
     Indication: Asthma
     Dosage: 1 INJECTION EVERY 4 WEEKS DOSE: THIRD DOSE
     Route: 058
     Dates: start: 20221114, end: 20230109
  2. SILDENAFIL [Concomitant]
     Active Substance: SILDENAFIL
     Dosage: 1 TABLET IF NEEDED.50.0MG INTERMITTENT
     Route: 048
     Dates: start: 20171201
  3. ATARAX [Concomitant]
     Active Substance: HYDROXYZINE HYDROCHLORIDE
     Dosage: 0.5 TO 1 TABLET, 1 - 3 TIMES AS NEEDED
     Route: 048
     Dates: start: 20190227, end: 20230117
  4. ACETAMINOPHEN [Concomitant]
     Active Substance: ACETAMINOPHEN
     Dosage: 1-2 TABLETS AS NEEDED, MAX 8/DAY
     Route: 048
     Dates: start: 20220110
  5. ACETYLCYSTEIN 1A FARMA [Concomitant]
     Dosage: 1 PC IF NEEDED, MAX 3/DAY
     Route: 048
     Dates: start: 20220107, end: 20230117
  6. INNOVAIR [Concomitant]
     Active Substance: BECLOMETHASONE DIPROPIONATE\FORMOTEROL
     Dosage: 2 INHALATIONS 2 TIMES PER DAY
     Route: 055
     Dates: start: 20220407
  7. MOMETASONE [Concomitant]
     Active Substance: MOMETASONE
     Dosage: 2 SPRAYS IF NEEDED100.0UG INTERMITTENT
     Route: 045
     Dates: start: 20220603
  8. IBUPROFEN [Concomitant]
     Active Substance: IBUPROFEN
     Dosage: 1 TABLET AS NEEDED, MAX 3/DAY
     Route: 048
     Dates: start: 20210129, end: 20240201
  9. BRICANYL [Concomitant]
     Active Substance: TERBUTALINE SULFATE
     Dosage: 1-2 INHALATIONS AS NEEDED, MAX 6 / DAY
     Route: 055
     Dates: start: 20220110
  10. SPIRIVA RESPIMAT [Concomitant]
     Active Substance: TIOTROPIUM BROMIDE
     Dosage: 2 INHALATIONS 1 TIME PER DAY
     Route: 055
     Dates: start: 20220615

REACTIONS (4)
  - Hepatic enzyme increased [Recovered/Resolved]
  - Pruritus [Recovered/Resolved]
  - Vomiting [Recovered/Resolved]
  - Chromaturia [Recovered/Resolved]

NARRATIVE: CASE EVENT DATE: 20230111
